FAERS Safety Report 22087479 (Version 2)
Quarter: 2023Q2

REPORT INFORMATION
  Report Type: Report from Study
  Country: US (occurrence: US)
  Receive Date: 20230313
  Receipt Date: 20230403
  Transmission Date: 20230722
  Serious: Yes (Life-Threatening, Hospitalization, Other)
  Sender: FDA-Public Use
  Company Number: US-ACADIA PHARMACEUTICALS INC.-ACA-2023-PIM-000868

PATIENT
  Sex: Male

DRUGS (1)
  1. NUPLAZID [Suspect]
     Active Substance: PIMAVANSERIN TARTRATE
     Indication: Parkinson^s disease psychosis
     Dosage: 34 MILLIGRAM, QD
     Route: 048
     Dates: start: 20230105

REACTIONS (8)
  - Seizure [Unknown]
  - Balance disorder [Unknown]
  - Blood pressure increased [Unknown]
  - Hallucination [Unknown]
  - Fall [Unknown]
  - Hallucination, visual [Unknown]
  - Confusional state [Unknown]
  - Adverse drug reaction [Unknown]
